FAERS Safety Report 9839983 (Version 1)
Quarter: 2013Q4

REPORT INFORMATION
  Report Type: Spontaneous
  Country: US (occurrence: None)
  Receive Date: 20131211
  Receipt Date: 20131211
  Transmission Date: 20140711
  Serious: No
  Sender: FDA-Public Use
  Company Number: ALL1-2012-01938

PATIENT
  Age: 48 Year
  Sex: Male

DRUGS (5)
  1. FIRAZYR [Suspect]
     Indication: HEREDITARY ANGIOEDEMA
     Dosage: 30MG, AS REQ^D SUBCUTANEOUS
     Route: 058
     Dates: start: 2011
  2. CINRYZE [Suspect]
     Indication: HEREDITARY ANGIOEDEMA
     Dosage: EVERY 48 HOURS, INTRAVENOUS
  3. CINRYZE [Suspect]
     Indication: PROPHYLAXIS
     Dosage: EVERY 48 HOURS, INTRAVENOUS
  4. PAIN MEDICATION [Concomitant]
  5. ANTIHISTAMINES [Concomitant]

REACTIONS (6)
  - Burning sensation [None]
  - Abdominal distension [None]
  - Urticaria [None]
  - Hereditary angioedema [None]
  - Condition aggravated [None]
  - Injection site pain [None]
